FAERS Safety Report 16271552 (Version 1)
Quarter: 2019Q2

REPORT INFORMATION
  Report Type: Report from Study
  Country: TH (occurrence: TH)
  Receive Date: 20190503
  Receipt Date: 20190503
  Transmission Date: 20190711
  Serious: Yes (Other)
  Sender: FDA-Public Use
  Company Number: TH-JNJFOC-20190438514

PATIENT

DRUGS (1)
  1. RILPIVIRINE HYDROCHLORIDE [Suspect]
     Active Substance: RILPIVIRINE HYDROCHLORIDE
     Indication: HIV INFECTION
     Route: 065

REACTIONS (5)
  - Hepatitis [Recovered/Resolved]
  - Electrocardiogram QT prolonged [Unknown]
  - Lipodystrophy acquired [Unknown]
  - Glomerular filtration rate decreased [Unknown]
  - Rash [Unknown]
